FAERS Safety Report 25615222 (Version 1)
Quarter: 2025Q3

REPORT INFORMATION
  Report Type: Spontaneous
  Country: CN (occurrence: CN)
  Receive Date: 20250729
  Receipt Date: 20250729
  Transmission Date: 20251020
  Serious: Yes (Hospitalization, Other)
  Sender: NOVO NORDISK
  Company Number: None

PATIENT
  Age: 56 Year
  Sex: Female
  Weight: 77 kg

DRUGS (2)
  1. RYZODEG 70/30 [Suspect]
     Active Substance: INSULIN ASPART\INSULIN DEGLUDEC
     Dosage: 27 IU, QD(17 IU IN THE MORNING AND 10 IU IN THE EVENING, BEFORE MEALS, BID)
     Route: 058
     Dates: start: 20250615
  2. RYZODEG 70/30 [Suspect]
     Active Substance: INSULIN ASPART\INSULIN DEGLUDEC
     Indication: Diabetes mellitus
     Dosage: 17 IU, QD
     Route: 058
     Dates: start: 20250604, end: 202506

REACTIONS (2)
  - Erythema multiforme [Recovering/Resolving]
  - Drug eruption [Recovered/Resolved]

NARRATIVE: CASE EVENT DATE: 20250612
